FAERS Safety Report 18188290 (Version 1)
Quarter: 2020Q3

REPORT INFORMATION
  Report Type: Report from Study
  Country: IT (occurrence: IT)
  Receive Date: 20200824
  Receipt Date: 20200824
  Transmission Date: 20201103
  Serious: Yes (Other)
  Sender: FDA-Public Use
  Company Number: IT-JNJFOC-20200820391

PATIENT

DRUGS (4)
  1. METHOTREXATE. [Concomitant]
     Active Substance: METHOTREXATE
     Route: 065
  2. SIMPONI [Suspect]
     Active Substance: GOLIMUMAB
     Indication: PSORIATIC ARTHROPATHY
  3. SIMPONI [Suspect]
     Active Substance: GOLIMUMAB
     Indication: RHEUMATOID ARTHRITIS
     Route: 058
  4. SIMPONI [Suspect]
     Active Substance: GOLIMUMAB
     Indication: SPONDYLITIS

REACTIONS (16)
  - Tooth abscess [Unknown]
  - Ovarian cancer [Unknown]
  - Thrombocytopenia [Unknown]
  - Meningioma [Unknown]
  - Breast cancer [Unknown]
  - Cerebrovascular disorder [Unknown]
  - Pneumonia [Unknown]
  - Injection site reaction [Unknown]
  - Rash [Unknown]
  - Neuropathy peripheral [Unknown]
  - Psoriasis [Unknown]
  - Treatment failure [Unknown]
  - Lung disorder [Unknown]
  - Neutropenia [Unknown]
  - Gastrointestinal disorder [Unknown]
  - Herpes zoster [Unknown]
